FAERS Safety Report 6945722-3 (Version None)
Quarter: 2010Q3

REPORT INFORMATION
  Report Type: 
  Country: None (occurrence: None)
  Receive Date: 20100827
  Receipt Date: 20100820
  Transmission Date: 20110219
  Serious: Yes (Death)
  Sender: FDA-Public Use
  Company Number: A0806134A

PATIENT
  Sex: Male

DRUGS (1)
  1. ROSIGLITAZONE MALEATE [Suspect]
     Indication: DIABETES MELLITUS
     Route: 048

REACTIONS (8)
  - CARDIAC FAILURE CONGESTIVE [None]
  - HEPATIC CIRRHOSIS [None]
  - ILL-DEFINED DISORDER [None]
  - INJURY [None]
  - MYOCARDIAL INFARCTION [None]
  - PARKINSON'S DISEASE [None]
  - PNEUMONIA [None]
  - RESPIRATORY FAILURE [None]
